FAERS Safety Report 11271845 (Version 1)
Quarter: 2015Q3

REPORT INFORMATION
  Report Type: Spontaneous
  Country: ES (occurrence: ES)
  Receive Date: 20150715
  Receipt Date: 20150715
  Transmission Date: 20151125
  Serious: Yes (Death, Disabling)
  Sender: FDA-Public Use
  Company Number: ES-ROCHE-ITM201506IM017934

PATIENT
  Age: 75 Year
  Sex: Male
  Weight: 58 kg

DRUGS (19)
  1. SERTRALINE [Suspect]
     Active Substance: SERTRALINE HYDROCHLORIDE
     Indication: PRODUCT USED FOR UNKNOWN INDICATION
     Route: 065
  2. CARBIDOPA/LEVODOPA [Concomitant]
     Active Substance: CARBIDOPA\LEVODOPA
  3. OXYGEN. [Concomitant]
     Active Substance: OXYGEN
     Dosage: UNIT DOSE: 4 LITERS/MINUTE
     Route: 065
  4. ZOLPIDEM [Concomitant]
     Active Substance: ZOLPIDEM\ZOLPIDEM TARTRATE
  5. EMCONCOR [Concomitant]
     Active Substance: BISOPROLOL FUMARATE
  6. ESBRIET [Suspect]
     Active Substance: PIRFENIDONE
     Indication: IDIOPATHIC PULMONARY FIBROSIS
     Route: 048
     Dates: start: 20141120
  7. PANTOPRAZOLE [Concomitant]
     Active Substance: PANTOPRAZOLE SODIUM
  8. PULMICORT TURBUHALER [Concomitant]
     Active Substance: BUDESONIDE
  9. UNIKET [Concomitant]
     Active Substance: ISOSORBIDE MONONITRATE
  10. TRAZODONE [Concomitant]
     Active Substance: TRAZODONE HYDROCHLORIDE
  11. BENSERAZIDE [Concomitant]
     Active Substance: BENSERAZIDE
  12. SPIRIVA [Concomitant]
     Active Substance: TIOTROPIUM BROMIDE MONOHYDRATE
  13. PLAVIX [Concomitant]
     Active Substance: CLOPIDOGREL BISULFATE
  14. DEPRAX (SPAIN) [Concomitant]
  15. OXYGEN. [Concomitant]
     Active Substance: OXYGEN
     Route: 065
     Dates: start: 201412
  16. ALLOPURINOL. [Concomitant]
     Active Substance: ALLOPURINOL
     Route: 065
  17. LIVAZO [Concomitant]
     Active Substance: PITAVASTATIN CALCIUM
  18. TIAPRIZAL [Concomitant]
     Active Substance: TIAPRIDE HYDROCHLORIDE
  19. RIVOTRIL [Concomitant]
     Active Substance: CLONAZEPAM
     Route: 065

REACTIONS (11)
  - Polyuria [Unknown]
  - Photopsia [Unknown]
  - Nausea [Unknown]
  - Nervousness [Unknown]
  - Urinary hesitation [Unknown]
  - Myoclonic epilepsy [Unknown]
  - Insomnia [Unknown]
  - Headache [Unknown]
  - Tremor [Fatal]
  - Paraesthesia [Unknown]
  - Decreased appetite [Unknown]

NARRATIVE: CASE EVENT DATE: 20141212
